FAERS Safety Report 7023705-5 (Version None)
Quarter: 2010Q4

REPORT INFORMATION
  Report Type: 
  Country: None (occurrence: None)
  Receive Date: 20101001
  Receipt Date: 20100721
  Transmission Date: 20110411
  Serious: Yes (Other)
  Sender: FDA-Public Use
  Company Number: US-ASTRAZENECA-2007UW26654

PATIENT
  Age: 13184 Day
  Sex: Male
  Weight: 108.4 kg

DRUGS (25)
  1. SEROQUEL [Suspect]
     Indication: INSOMNIA
     Route: 048
     Dates: start: 20040501, end: 20061001
  2. SEROQUEL [Suspect]
     Indication: SLEEP DISORDER
     Route: 048
     Dates: start: 20040501, end: 20061001
  3. SEROQUEL [Suspect]
     Route: 048
     Dates: start: 20040501, end: 20061001
  4. SEROQUEL [Suspect]
     Route: 048
     Dates: start: 20040501, end: 20061001
  5. SEROQUEL [Suspect]
     Dosage: 25-200 MG
     Route: 048
     Dates: start: 20040528, end: 20040531
  6. SEROQUEL [Suspect]
     Dosage: 25-200 MG
     Route: 048
     Dates: start: 20040528, end: 20040531
  7. SEROQUEL [Suspect]
     Route: 048
     Dates: start: 20040528, end: 20070130
  8. SEROQUEL [Suspect]
     Route: 048
     Dates: start: 20040528, end: 20070130
  9. SEROQUEL [Suspect]
     Dosage: 25-100 MG
     Route: 048
     Dates: start: 20050519
  10. SEROQUEL [Suspect]
     Dosage: 25-100 MG
     Route: 048
     Dates: start: 20050519
  11. ZYPREXA [Suspect]
     Indication: AFFECTIVE DISORDER
     Dates: start: 20040422, end: 20040508
  12. ZYPREXA [Suspect]
     Indication: DEPRESSION
     Dates: start: 20040422, end: 20040508
  13. ZYPREXA [Suspect]
     Dates: start: 20040501
  14. ZYPREXA [Suspect]
     Dates: start: 20040501
  15. DEPAKOTE ER [Suspect]
     Dates: start: 20040501
  16. DEPAKOTE ER [Suspect]
     Dosage: 50-3000 MG
     Dates: start: 20040528
  17. WELLBUTRIN SR [Concomitant]
     Dates: start: 20040501
  18. WELLBUTRIN SR [Concomitant]
     Dates: start: 20050413
  19. TRILEPTAL [Concomitant]
     Dates: start: 20040501
  20. EFFEXOR XR [Concomitant]
     Dates: start: 20040610
  21. LISINOPRIL [Concomitant]
     Dosage: 10 MG, 20 QD
     Dates: start: 20050715
  22. NORVASC [Concomitant]
     Dates: end: 20050715
  23. NAPROSYN [Concomitant]
     Indication: ARTHRALGIA
     Dosage: 500 BID, AS NEEDED
     Route: 048
     Dates: start: 20050715
  24. AVANDIA [Concomitant]
     Dosage: 4 HOURS
     Dates: start: 20041117
  25. INDOMETHACIN [Concomitant]
     Dates: start: 20040804

REACTIONS (20)
  - ARTHRALGIA [None]
  - BLOOD CHOLESTEROL INCREASED [None]
  - BLOOD TRIGLYCERIDES INCREASED [None]
  - DIABETES MELLITUS [None]
  - DYSLIPIDAEMIA [None]
  - ERECTILE DYSFUNCTION [None]
  - FATIGUE [None]
  - GLUCOSE TOLERANCE IMPAIRED [None]
  - HYPERGLYCAEMIA [None]
  - HYPERSOMNIA [None]
  - HYPERTENSION [None]
  - JOINT SWELLING [None]
  - OBESITY [None]
  - OEDEMA PERIPHERAL [None]
  - PAIN IN EXTREMITY [None]
  - SEXUAL DYSFUNCTION [None]
  - SWELLING [None]
  - TYPE 2 DIABETES MELLITUS [None]
  - VISION BLURRED [None]
  - WEIGHT INCREASED [None]
